FAERS Safety Report 8176655-5 (Version None)
Quarter: 2012Q1

REPORT INFORMATION
  Report Type: 
  Country: None (occurrence: None)
  Receive Date: 20120123
  Receipt Date: 20110928
  Transmission Date: 20120608
  Serious: Yes (Hospitalization)
  Sender: FDA-Public Use
  Company Number: 2011AL000077

PATIENT
  Age: 66 Year
  Sex: Female

DRUGS (1)
  1. FOLOTYN [Suspect]
     Indication: MYCOSIS FUNGOIDES
     Dosage: 30 MG/M**2; ;IV
     Route: 042
     Dates: start: 20110301

REACTIONS (1)
  - SKIN EXFOLIATION [None]
